FAERS Safety Report 4855992-3 (Version None)
Quarter: 2005Q4

REPORT INFORMATION
  Report Type: 
  Country: None (occurrence: None)
  Receive Date: 20051214
  Receipt Date: 20051128
  Transmission Date: 20060501
  Serious: Yes (Hospitalization)
  Sender: FDA-Public Use
  Company Number: 2002JP006271

PATIENT
  Age: 33 Year
  Sex: Male

DRUGS (5)
  1. TACROLIMUS (TACROLIMUS) [Suspect]
     Dosage: SEE IMAGE
     Dates: start: 20001127, end: 20001128
  2. TACROLIMUS (TACROLIMUS) [Suspect]
     Dosage: SEE IMAGE
     Dates: start: 20001129, end: 20001205
  3. TACROLIMUS (TACROLIMUS) [Suspect]
     Dosage: SEE IMAGE
     Dates: start: 20001206
  4. MYCOPHENOLATE MOFETIL (MYCOPHENOLATE MOFETIL) [Concomitant]
  5. METHYLPREDNISOLONE [Concomitant]

REACTIONS (2)
  - APLASIA PURE RED CELL [None]
  - ERYTHEMA INFECTIOSUM [None]
